FAERS Safety Report 9050706 (Version 1)
Quarter: 2013Q1

REPORT INFORMATION
  Report Type: Report from Study
  Country: JP (occurrence: JP)
  Receive Date: 20130205
  Receipt Date: 20130205
  Transmission Date: 20140127
  Serious: Yes (Death)
  Sender: FDA-Public Use
  Company Number: JP-ASTELLAS-2013JP000485

PATIENT
  Age: 78 None
  Sex: Male
  Weight: 65 kg

DRUGS (8)
  1. MIRABEGRON [Suspect]
     Indication: HYPERTONIC BLADDER
     Dosage: 50 MG, UID/QD
     Route: 048
     Dates: start: 20121030, end: 20130113
  2. FLIVAS [Concomitant]
     Indication: BENIGN PROSTATIC HYPERPLASIA
     Dosage: 50 MG, UNKNOWN/D
     Route: 048
     Dates: end: 20130113
  3. BAYASPIRIN [Concomitant]
     Indication: ANGINA PECTORIS
     Dosage: 100 MG, UID/QD
     Route: 048
     Dates: end: 20130113
  4. STANZOME [Concomitant]
     Indication: GASTRIC ULCER
     Dosage: 15 MG, UNKNOWN/D
     Route: 048
     Dates: end: 20130113
  5. LIPITOR [Concomitant]
     Indication: DYSLIPIDAEMIA
     Dosage: UNK
     Route: 048
     Dates: end: 20130113
  6. MAINTATE [Concomitant]
     Indication: HYPERTENSION
     Dosage: UNK
     Route: 048
     Dates: end: 20130113
  7. PLETAAL [Concomitant]
     Indication: ANGINA PECTORIS
     Dosage: UNK
     Route: 048
     Dates: end: 20130113
  8. MICARDIS [Concomitant]
     Indication: HYPERTENSION
     Dosage: UNK
     Route: 048
     Dates: end: 20130113

REACTIONS (1)
  - Cerebral haemorrhage [Fatal]
